APPROVED DRUG PRODUCT: PROMETH W/ DEXTROMETHORPHAN
Active Ingredient: DEXTROMETHORPHAN HYDROBROMIDE; PROMETHAZINE HYDROCHLORIDE
Strength: 15MG/5ML;6.25MG/5ML **Federal Register determination that product was not discontinued or withdrawn for safety or effectiveness reasons**
Dosage Form/Route: SYRUP;ORAL
Application: A088762 | Product #001
Applicant: G AND W LABORATORIES INC
Approved: Oct 31, 1984 | RLD: No | RS: No | Type: DISCN